FAERS Safety Report 9719798 (Version 1)
Quarter: 2013Q4

REPORT INFORMATION
  Report Type: Spontaneous
  Country: US (occurrence: US)
  Receive Date: 20131128
  Receipt Date: 20131128
  Transmission Date: 20140711
  Serious: Yes (Other)
  Sender: FDA-Public Use
  Company Number: CHPA2013US017726

PATIENT
  Age: 76 Year
  Sex: Male

DRUGS (3)
  1. MAALOX ANTACID LIQUID - UNKNOWN [Suspect]
     Indication: GASTROOESOPHAGEAL REFLUX DISEASE
     Dosage: 1 TBSP, PRN
     Route: 048
  2. MAALOX ANTACID LIQUID - UNKNOWN [Suspect]
     Indication: GASTRIC ULCER
  3. MAALOX ANTACID LIQUID - UNKNOWN [Suspect]
     Indication: OFF LABEL USE

REACTIONS (2)
  - Intervertebral disc degeneration [Not Recovered/Not Resolved]
  - Incorrect dose administered [Unknown]
